FAERS Safety Report 24290792 (Version 1)
Quarter: 2024Q3

REPORT INFORMATION
  Report Type: Spontaneous
  Country: CN (occurrence: CN)
  Receive Date: 20240906
  Receipt Date: 20240906
  Transmission Date: 20241017
  Serious: Yes (Other)
  Sender: GE HEALTHCARE
  Company Number: CN-GE HEALTHCARE-2024CSU009818

PATIENT
  Age: 70 Year
  Sex: Female

DRUGS (2)
  1. VISIPAQUE [Suspect]
     Active Substance: IODIXANOL
     Indication: Diagnostic procedure
     Dosage: 100 ML, TOTAL
     Route: 042
     Dates: start: 20240821, end: 20240821
  2. VISIPAQUE [Suspect]
     Active Substance: IODIXANOL
     Indication: Interventional procedure

REACTIONS (4)
  - Ocular vascular disorder [Recovering/Resolving]
  - Eye swelling [Recovering/Resolving]
  - Rash [Recovering/Resolving]
  - Pruritus [Recovering/Resolving]

NARRATIVE: CASE EVENT DATE: 20240821
